FAERS Safety Report 4942496-2 (Version None)
Quarter: 2006Q1

REPORT INFORMATION
  Report Type: 
  Country: None (occurrence: None)
  Receive Date: 20060313
  Receipt Date: 20050315
  Transmission Date: 20060701
  Serious: No
  Sender: FDA-Public Use
  Company Number: US-GLAXOSMITHKLINE-A0549780A

PATIENT

DRUGS (4)
  1. NICORETTE [Suspect]
     Indication: DRUG USE FOR UNKNOWN INDICATION
  2. NICORETTE (MINT) [Suspect]
     Indication: DRUG USE FOR UNKNOWN INDICATION
  3. NICORETTE (ORANGE) [Suspect]
     Indication: DRUG USE FOR UNKNOWN INDICATION
  4. NICORETTE [Suspect]

REACTIONS (2)
  - BLOOD GLUCOSE INCREASED [None]
  - HICCUPS [None]
